FAERS Safety Report 18763115 (Version 6)
Quarter: 2021Q3

REPORT INFORMATION
  Report Type: Other
  Country: PE (occurrence: PE)
  Receive Date: 20210120
  Receipt Date: 20210709
  Transmission Date: 20211014
  Serious: Yes (Hospitalization, Other)
  Sender: FDA-Public Use
  Company Number: PE-ROCHE-2732468

PATIENT
  Age: 83 Year
  Sex: Female

DRUGS (15)
  1. XOLAIR [Suspect]
     Active Substance: OMALIZUMAB
     Indication: ASTHMA
     Route: 058
     Dates: start: 2018, end: 202003
  2. XOLAIR [Suspect]
     Active Substance: OMALIZUMAB
     Route: 058
     Dates: end: 20201203
  3. XOLAIR [Suspect]
     Active Substance: OMALIZUMAB
     Route: 058
     Dates: end: 20201222
  4. XOLAIR [Suspect]
     Active Substance: OMALIZUMAB
     Route: 058
     Dates: start: 20210607
  5. VITAMIN B COMPLEX [Concomitant]
     Active Substance: CYANOCOBALAMIN\DEXPANTHENOL\NIACINAMIDE\PYRIDOXINE HYDROCHLORIDE\RIBOFLAVIN 5^-PHOSPHATE SODIUM\THIAMINE HYDROCHLORIDE\VITAMIN B COMPLEX
     Indication: PRODUCT USED FOR UNKNOWN INDICATION
     Dosage: 1 DF, Q12H
     Route: 048
     Dates: start: 202003
  6. SALBUTAMOL [Concomitant]
     Active Substance: ALBUTEROL
     Indication: ASTHMA
     Dosage: 2 DF, Q12H (PUFF)
  7. OMEPRAZOLE. [Concomitant]
     Active Substance: OMEPRAZOLE
     Indication: GASTRITIS
     Route: 048
  8. THEOLAIR [Concomitant]
     Active Substance: THEOPHYLLINE ANHYDROUS
  9. XOLAIR [Suspect]
     Active Substance: OMALIZUMAB
     Route: 058
     Dates: end: 20210204
  10. ENALAPRIL [Concomitant]
     Active Substance: ENALAPRIL
     Indication: HYPERTENSION
     Dosage: 20 MG, Q12H
     Route: 048
     Dates: start: 2019
  11. CAPTOPRIL. [Concomitant]
     Active Substance: CAPTOPRIL
     Indication: PRODUCT USED FOR UNKNOWN INDICATION
     Dosage: UNK
     Route: 065
  12. XOLAIR [Suspect]
     Active Substance: OMALIZUMAB
     Route: 058
     Dates: end: 20210107
  13. XOLAIR [Suspect]
     Active Substance: OMALIZUMAB
     Route: 058
  14. SERETIDE [Concomitant]
     Active Substance: FLUTICASONE PROPIONATE\SALMETEROL XINAFOATE
     Indication: ASTHMA
     Dosage: 2 DF, Q24H (PUFF)
     Route: 065
  15. IPRATROPIUM BROMIDE. [Concomitant]
     Active Substance: IPRATROPIUM BROMIDE

REACTIONS (19)
  - Psychiatric symptom [Unknown]
  - Anxiety [Recovered/Resolved]
  - Bronchial disorder [Not Recovered/Not Resolved]
  - Malaise [Recovering/Resolving]
  - Feeling abnormal [Recovered/Resolved]
  - Pain in extremity [Not Recovered/Not Resolved]
  - Choking [Unknown]
  - Visual impairment [Recovering/Resolving]
  - Dizziness [Recovered/Resolved]
  - Pneumonia [Unknown]
  - Swelling [Unknown]
  - Pyrexia [Recovered/Resolved]
  - Productive cough [Recovering/Resolving]
  - Depressed mood [Not Recovered/Not Resolved]
  - Discomfort [Recovered/Resolved]
  - Cataract [Unknown]
  - Asthmatic crisis [Unknown]
  - Pain [Unknown]
  - Lower respiratory tract congestion [Recovering/Resolving]

NARRATIVE: CASE EVENT DATE: 2018
